FAERS Safety Report 8244929-5 (Version None)
Quarter: 2012Q1

REPORT INFORMATION
  Report Type: 
  Country: None (occurrence: None)
  Receive Date: 20120329
  Receipt Date: 20110919
  Transmission Date: 20120608
  Serious: No
  Sender: FDA-Public Use
  Company Number: US-MYLANLABS-2011S1019814

PATIENT
  Age: 51 Year
  Sex: Female

DRUGS (5)
  1. ZYRTEC [Concomitant]
  2. CIPROFLOXACIN [Concomitant]
     Dates: start: 20110918
  3. BENADRYL [Concomitant]
  4. FENTANYL-100 [Suspect]
     Indication: PAIN
     Dosage: Q72H
     Route: 062
     Dates: start: 20110918
  5. TYLENOL [Concomitant]

REACTIONS (1)
  - PYREXIA [None]
